FAERS Safety Report 20697377 (Version 6)
Quarter: 2022Q2

REPORT INFORMATION
  Report Type: Spontaneous
  Country: US (occurrence: US)
  Receive Date: 20220411
  Receipt Date: 20220629
  Transmission Date: 20220720
  Serious: Yes (Other)
  Sender: FDA-Public Use
  Company Number: US-PFIZER INC-202200184137

PATIENT
  Age: 63 Year
  Sex: Female

DRUGS (1)
  1. IBRANCE [Suspect]
     Active Substance: PALBOCICLIB
     Indication: Breast cancer female
     Dosage: 125 MG
     Dates: start: 20220105

REACTIONS (18)
  - Venous thrombosis limb [Unknown]
  - Ocular vascular disorder [Unknown]
  - Arthralgia [Unknown]
  - Back pain [Unknown]
  - COVID-19 [Unknown]
  - Dry skin [Unknown]
  - Fatigue [Unknown]
  - Lacrimation increased [Unknown]
  - Nerve injury [Unknown]
  - Pain [Unknown]
  - Urine analysis abnormal [Unknown]
  - Headache [Unknown]
  - Sleep disorder [Unknown]
  - Memory impairment [Unknown]
  - Arthralgia [Unknown]
  - Insomnia [Unknown]
  - Condition aggravated [Unknown]
  - Product dose omission issue [Unknown]
